FAERS Safety Report 4851708-5 (Version None)
Quarter: 2005Q4

REPORT INFORMATION
  Report Type: 
  Country: None (occurrence: None)
  Receive Date: 20051213
  Receipt Date: 20050909
  Transmission Date: 20060501
  Serious: Yes (Death)
  Sender: FDA-Public Use
  Company Number: DE-BOEHRINGER INGELHEIM PHARMACEUTICALS, INC.-2005-DE-03672DE

PATIENT
  Sex: Female
  Weight: 67 kg

DRUGS (3)
  1. MICARDIS HCT [Suspect]
     Indication: ESSENTIAL HYPERTENSION
     Dosage: 80 MG TELMISARTAN, 12,5 MG HCT
     Dates: start: 20050208
  2. CALCIUM ANTAGONIST [Concomitant]
  3. MONOBETA [Concomitant]

REACTIONS (1)
  - SUDDEN DEATH [None]
